FAERS Safety Report 24716721 (Version 1)
Quarter: 2024Q4

REPORT INFORMATION
  Report Type: Spontaneous
  Country: IL (occurrence: IL)
  Receive Date: 20241210
  Receipt Date: 20241210
  Transmission Date: 20250114
  Serious: Yes (Other)
  Sender: NOVARTIS
  Company Number: IL-002147023-NVSC2024IL234296

PATIENT
  Age: 13 Year

DRUGS (4)
  1. DEFERASIROX [Suspect]
     Active Substance: DEFERASIROX
     Indication: Thalassaemia beta
     Dosage: UNK
     Route: 065
  2. DEFERASIROX [Suspect]
     Active Substance: DEFERASIROX
     Indication: Thalassaemia
  3. VITAMIN D [Suspect]
     Active Substance: VITAMIN D NOS
     Indication: Thalassaemia beta
     Dosage: UNK (THE PATIENT HAD BEEN RECEIVING THERAPY FOR 0.25 YEARS)
     Route: 065
  4. VITAMIN D [Suspect]
     Active Substance: VITAMIN D NOS
     Indication: Thalassaemia

REACTIONS (1)
  - Nephrolithiasis [Unknown]
